FAERS Safety Report 4698050-3 (Version None)
Quarter: 2005Q2

REPORT INFORMATION
  Report Type: 
  Country: None (occurrence: None)
  Receive Date: 20050621
  Receipt Date: 20050609
  Transmission Date: 20051028
  Serious: Yes (Hospitalization, Other)
  Sender: FDA-Public Use
  Company Number: HQWYE343509JUN05

PATIENT
  Age: 87 Year
  Sex: Female

DRUGS (7)
  1. CORDARONE [Suspect]
     Indication: ATRIAL FIBRILLATION
     Dosage: 200 MG, ORAL
     Route: 048
     Dates: end: 20050504
  2. RAMIPRIL [Concomitant]
  3. CLONIDINE [Concomitant]
  4. POTASSIUM CHLORIDE [Concomitant]
  5. XYZALL (LEVOCETIRIZINE) [Concomitant]
  6. INSULIN MIXTARD (INSULIN INJECTION, ISOPHANE) [Concomitant]
  7. LASIX [Concomitant]

REACTIONS (4)
  - CONDITION AGGRAVATED [None]
  - ECZEMA [None]
  - EMOTIONAL DISTRESS [None]
  - PSORIASIS [None]
